FAERS Safety Report 4523347-7 (Version None)
Quarter: 2004Q4

REPORT INFORMATION
  Report Type: 
  Country: None (occurrence: None)
  Receive Date: 20041209
  Receipt Date: 20041123
  Transmission Date: 20050328
  Serious: Yes (Other)
  Sender: FDA-Public Use
  Company Number: 2004101326

PATIENT
  Sex: Female

DRUGS (2)
  1. CELEBREX [Suspect]
  2. LIPITOR [Suspect]
     Indication: BLOOD CHOLESTEROL ABNORMAL

REACTIONS (3)
  - ILL-DEFINED DISORDER [None]
  - OEDEMA PERIPHERAL [None]
  - PAIN [None]
